FAERS Safety Report 5315903-3 (Version None)
Quarter: 2007Q1

REPORT INFORMATION
  Report Type: 
  Country: None (occurrence: None)
  Receive Date: 20070130
  Receipt Date: 20061031
  Transmission Date: 20070707
  Serious: No
  Sender: FDA-Public Use
  Company Number: 200618972US

PATIENT
  Age: 67 Year
  Sex: Female

DRUGS (3)
  1. KETEK [Suspect]
     Indication: SINUSITIS
     Dosage: 400 MG PO
     Route: 048
     Dates: start: 20061030
  2. LEVAQUIN [Concomitant]
  3. SULFMETHOXAZOLE, TRIMETHOPRIM (BACTRIM /00086101/) [Concomitant]

REACTIONS (1)
  - DIARRHOEA [None]
